FAERS Safety Report 5474673-9 (Version None)
Quarter: 2007Q3

REPORT INFORMATION
  Report Type: 
  Country: None (occurrence: None)
  Receive Date: 20070831
  Receipt Date: 20070813
  Transmission Date: 20080115
  Serious: Yes (Life-Threatening)
  Sender: FDA-Public Use
  Company Number: 265035

PATIENT
  Age: 54 Year
  Sex: Male
  Weight: 72.6 kg

DRUGS (6)
  1. NOVOLIN N [Suspect]
     Indication: TYPE 1 DIABETES MELLITUS
     Dosage: 17 IU, QD 6 IU IN A.M. + 11 IU IN P.M., SUBCUTANEOUS
     Route: 058
  2. NOVOLOG [Suspect]
     Indication: TYPE 1 DIABETES MELLITUS
     Dosage: SLIDING SCALE 3-4 TIMES PER DAY, SUBCUTANEOUS
     Route: 058
  3. BENICAR [Concomitant]
  4. ATENOLOL [Concomitant]
  5. ALTACE [Concomitant]
  6. TOPROL-XL [Concomitant]

REACTIONS (3)
  - FALL [None]
  - HEAD INJURY [None]
  - HYPOGLYCAEMIC UNCONSCIOUSNESS [None]
